FAERS Safety Report 18141269 (Version 2)
Quarter: 2020Q3

REPORT INFORMATION
  Report Type: Spontaneous
  Country: DE (occurrence: DE)
  Receive Date: 20200812
  Receipt Date: 20200822
  Transmission Date: 20201103
  Serious: Yes (Death, Life-Threatening, Hospitalization, Other)
  Sender: FDA-Public Use
  Company Number: NVSC2020DE221647

PATIENT
  Age: 29 Year
  Sex: Male
  Weight: 76 kg

DRUGS (3)
  1. DESLORATADINE. [Suspect]
     Active Substance: DESLORATADINE
     Indication: HYPERSENSITIVITY
     Dosage: 5 MG, QD
     Route: 048
     Dates: start: 202006, end: 202006
  2. LORANOPRO [Suspect]
     Active Substance: DESLORATADINE
     Indication: SEASONAL ALLERGY
     Dosage: 1X1 TGL.
     Route: 048
     Dates: start: 20200618, end: 20200707
  3. LORANOPRO [Suspect]
     Active Substance: DESLORATADINE
     Indication: HYPERSENSITIVITY

REACTIONS (11)
  - Drug-induced liver injury [Fatal]
  - Hepatic enzyme abnormal [Unknown]
  - Vomiting [Unknown]
  - Blood bilirubin abnormal [Unknown]
  - Abdominal pain upper [Unknown]
  - Hepatic failure [Fatal]
  - Cholestasis [Unknown]
  - Hepatic encephalopathy [Unknown]
  - Nausea [Unknown]
  - Eosinophilia [Unknown]
  - Jaundice [Unknown]

NARRATIVE: CASE EVENT DATE: 20200620
